FAERS Safety Report 16842118 (Version 1)
Quarter: 2020Q3

REPORT INFORMATION
  Report Type: Spontaneous
  Country: US (occurrence: US)
  Receive Date: 20190923
  Receipt Date: 20190923
  Transmission Date: 20201104
  Serious: Yes (Death, Other)
  Sender: FDA-Public Use
  Company Number: US-AUROBINDO-AUR-APL-2019-061456

PATIENT
  Age: 41 Year
  Sex: Female

DRUGS (3)
  1. FERROUS SULFATE. [Suspect]
     Active Substance: FERROUS SULFATE
     Indication: PRODUCT USED FOR UNKNOWN INDICATION
     Dosage: UNK
     Route: 065
  2. IBUPROFEN. [Suspect]
     Active Substance: IBUPROFEN
     Indication: PRODUCT USED FOR UNKNOWN INDICATION
     Dosage: UNK
     Route: 065
  3. DIPHENHYDRAMINE. [Suspect]
     Active Substance: DIPHENHYDRAMINE
     Indication: PRODUCT USED FOR UNKNOWN INDICATION
     Dosage: UNK
     Route: 065

REACTIONS (15)
  - Condition aggravated [Fatal]
  - Disseminated intravascular coagulation [Fatal]
  - Acute respiratory distress syndrome [Fatal]
  - Hypoxia [Fatal]
  - Hypotension [Fatal]
  - Oxygen saturation decreased [Fatal]
  - Lethargy [Fatal]
  - Blood iron increased [Fatal]
  - Tachycardia [Fatal]
  - Completed suicide [Fatal]
  - Toxicity to various agents [Fatal]
  - Multiple organ dysfunction syndrome [Fatal]
  - Hepatic failure [Fatal]
  - Puncture site haemorrhage [Fatal]
  - Shock [Fatal]
